FAERS Safety Report 13756143 (Version 1)
Quarter: 2017Q3

REPORT INFORMATION
  Report Type: Spontaneous
  Country: DE (occurrence: DE)
  Receive Date: 20170714
  Receipt Date: 20170714
  Transmission Date: 20171127
  Serious: Yes (Other)
  Sender: FDA-Public Use
  Company Number: DE-HQ SPECIALTY-DE-2017INT000242

PATIENT

DRUGS (2)
  1. DEXMEDETOMIDINE HYDROCHLORIDE. [Suspect]
     Active Substance: DEXMEDETOMIDINE HYDROCHLORIDE
     Indication: PRODUCT USED FOR UNKNOWN INDICATION
     Dosage: UNK
     Route: 040
  2. DEXMEDETOMIDINE HYDROCHLORIDE. [Suspect]
     Active Substance: DEXMEDETOMIDINE HYDROCHLORIDE
     Dosage: CONTINUOUS INFUSION
     Route: 042

REACTIONS (3)
  - Drug administered to patient of inappropriate age [Recovered/Resolved]
  - Blood pressure diastolic decreased [Unknown]
  - Mean arterial pressure decreased [Unknown]
